FAERS Safety Report 9745718 (Version 2)
Quarter: 2013Q4

REPORT INFORMATION
  Report Type: Not Available
  Country: FR (occurrence: FR)
  Receive Date: 20131211
  Receipt Date: 20131211
  Transmission Date: 20140711
  Serious: Yes (Death, Hospitalization, Other)
  Sender: FDA-Public Use
  Company Number: FR-ASTELLAS-2013EU009143

PATIENT
  Age: 71 Year
  Sex: Male

DRUGS (5)
  1. PROGRAF [Suspect]
     Indication: PROPHYLAXIS AGAINST TRANSPLANT REJECTION
     Dosage: 1 MG, BID
     Route: 048
     Dates: start: 201006, end: 20131029
  2. PROGRAF [Suspect]
     Dosage: UNK
     Route: 050
     Dates: start: 20131018
  3. CELLCEPT /01275102/ [Suspect]
     Indication: IMMUNOSUPPRESSION
     Dosage: UNK
     Route: 048
     Dates: start: 201006, end: 20131029
  4. CORTANCYL [Suspect]
     Indication: IMMUNOSUPPRESSION
     Dosage: UNK
     Route: 065
     Dates: start: 201006
  5. CERTICAN [Suspect]
     Indication: IMMUNOSUPPRESSION
     Dosage: UNK
     Route: 048
     Dates: start: 20100505, end: 20131029

REACTIONS (3)
  - Off label use [Unknown]
  - Metastasis [Fatal]
  - Dysphagia [Not Recovered/Not Resolved]
